FAERS Safety Report 4490973-3 (Version None)
Quarter: 2004Q3

REPORT INFORMATION
  Report Type: 
  Country: None (occurrence: None)
  Receive Date: 20040927
  Receipt Date: 20040806
  Transmission Date: 20050211
  Serious: No
  Sender: FDA-Public Use
  Company Number: USA040874929

PATIENT
  Age: 6 Year
  Sex: Male

DRUGS (1)
  1. STRATTERA [Suspect]
     Indication: ATTENTION DEFICIT/HYPERACTIVITY DISORDER
     Dosage: 25 MG DAY
     Dates: start: 20040701

REACTIONS (7)
  - ANOREXIA [None]
  - CHOKING [None]
  - CONSTIPATION [None]
  - EMOTIONAL DISORDER [None]
  - INSOMNIA [None]
  - ORAL DISCOMFORT [None]
  - RESTLESSNESS [None]
